FAERS Safety Report 4866273-6 (Version None)
Quarter: 2005Q4

REPORT INFORMATION
  Report Type: 
  Country: None (occurrence: None)
  Receive Date: 20051221
  Receipt Date: 20051209
  Transmission Date: 20060501
  Serious: Yes (Other)
  Sender: FDA-Public Use
  Company Number: 2005168801

PATIENT
  Age: 33 Year
  Sex: Male
  Weight: 80.7403 kg

DRUGS (2)
  1. RELPAX [Suspect]
     Indication: MIGRAINE
     Dosage: 40 MG, AS NEEDED, ORAL
     Route: 048
     Dates: start: 20051101
  2. ACETAMINOPHEN [Concomitant]

REACTIONS (5)
  - COLOUR VISION TESTS ABNORMAL [None]
  - EYE DISORDER [None]
  - FATIGUE [None]
  - VISION BLURRED [None]
  - VISUAL ACUITY REDUCED [None]
